FAERS Safety Report 18123967 (Version 2)
Quarter: 2025Q2

REPORT INFORMATION
  Report Type: Spontaneous
  Country: IE (occurrence: IE)
  Receive Date: 20200807
  Receipt Date: 20250621
  Transmission Date: 20250717
  Serious: Yes (Other)
  Sender: AUROBINDO
  Company Number: IE-GLAXOSMITHKLINE-IE2020GSK120077

PATIENT
  Age: 32 Year
  Sex: Female

DRUGS (11)
  1. TERBINAFINE [Suspect]
     Active Substance: TERBINAFINE
     Indication: Rash pruritic
     Route: 065
  2. TERBINAFINE [Suspect]
     Active Substance: TERBINAFINE
     Indication: Blister
  3. FLUCLOXACILLIN [Suspect]
     Active Substance: FLUCLOXACILLIN
     Indication: Blister
     Route: 048
  4. FLUCLOXACILLIN [Suspect]
     Active Substance: FLUCLOXACILLIN
     Indication: Rash pruritic
  5. DICLOFENAC [Suspect]
     Active Substance: DICLOFENAC
     Indication: Product used for unknown indication
     Route: 061
  6. BETAMETHASONE [Suspect]
     Active Substance: BETAMETHASONE
     Indication: Rash pruritic
     Route: 061
  7. BETAMETHASONE [Suspect]
     Active Substance: BETAMETHASONE
     Indication: Blister
  8. BETAMETHASONE [Suspect]
     Active Substance: BETAMETHASONE
     Indication: Rash pruritic
  9. CLOBETASOL PROPIONATE [Concomitant]
     Active Substance: CLOBETASOL PROPIONATE
     Indication: Product used for unknown indication
     Route: 061
  10. DOXYCYCLINE [Concomitant]
     Active Substance: DOXYCYCLINE
     Indication: Product used for unknown indication
     Route: 048
  11. NICOTINAMIDE [Concomitant]
     Active Substance: NIACINAMIDE
     Indication: Product used for unknown indication
     Dosage: 500 MILLIGRAM, 3 TIMES A DAY
     Route: 065

REACTIONS (12)
  - Pemphigus [Recovered/Resolved]
  - Skin disorder [Recovered/Resolved]
  - Blister [Recovered/Resolved]
  - Rash [Recovered/Resolved]
  - Rash papulosquamous [Recovered/Resolved]
  - Subcorneal pustular dermatosis [Recovered/Resolved]
  - Acantholysis [Recovered/Resolved]
  - Rash erythematous [Recovered/Resolved]
  - Skin erosion [Recovered/Resolved]
  - Therapeutic product effect incomplete [Unknown]
  - Scab [Recovered/Resolved]
  - Rash pruritic [Recovered/Resolved]
